FAERS Safety Report 4699034-1 (Version None)
Quarter: 2005Q2

REPORT INFORMATION
  Report Type: 
  Country: None (occurrence: None)
  Receive Date: 20050624
  Receipt Date: 20050408
  Transmission Date: 20051028
  Serious: Yes (Life-Threatening, Hospitalization, Disabling, Other)
  Sender: FDA-Public Use
  Company Number: PHNU2005DE01586

PATIENT
  Age: 50 Year
  Sex: Male
  Weight: 75 kg

DRUGS (2)
  1. VENLAFAXINE HCL [Concomitant]
     Indication: BIPOLAR DISORDER
     Dosage: 150 MG/DAY
     Route: 048
     Dates: start: 20030917, end: 20050314
  2. TEGRETOL [Suspect]
     Indication: BIPOLAR DISORDER
     Dosage: 400 MG, BID
     Route: 048
     Dates: start: 20030917, end: 20050314

REACTIONS (34)
  - ABDOMINAL TENDERNESS [None]
  - ALANINE AMINOTRANSFERASE INCREASED [None]
  - B-LYMPHOCYTE COUNT DECREASED [None]
  - BACTERIAL INFECTION [None]
  - BIOPSY BONE MARROW ABNORMAL [None]
  - BLOOD CHOLESTEROL INCREASED [None]
  - BLOOD GLUCOSE INCREASED [None]
  - BLOOD IMMUNOGLOBULIN A DECREASED [None]
  - BLOOD IMMUNOGLOBULIN G DECREASED [None]
  - BLOOD IMMUNOGLOBULIN M DECREASED [None]
  - BLOOD URIC ACID INCREASED [None]
  - BONE MARROW DEPRESSION [None]
  - BRONCHIAL INFECTION [None]
  - BRONCHITIS [None]
  - CARDIAC MURMUR [None]
  - CD4/CD8 RATIO INCREASED [None]
  - DIVERTICULITIS [None]
  - ECZEMA NUMMULAR [None]
  - ENDOCARDITIS BACTERIAL [None]
  - GASTROENTERITIS BACTERIAL [None]
  - HYPERHIDROSIS [None]
  - HYPOGAMMAGLOBULINAEMIA [None]
  - IMMUNODEFICIENCY [None]
  - IMMUNOGLOBULINS DECREASED [None]
  - INFECTION IN AN IMMUNOCOMPROMISED HOST [None]
  - LOW DENSITY LIPOPROTEIN INCREASED [None]
  - LYMPHOCYTE PERCENTAGE DECREASED [None]
  - MARROW HYPERPLASIA [None]
  - MEAN CELL VOLUME ABNORMAL [None]
  - MEAN CELL VOLUME DECREASED [None]
  - PAIN [None]
  - RENAL CYST [None]
  - STREPTOCOCCAL INFECTION [None]
  - T-LYMPHOCYTE COUNT DECREASED [None]
